FAERS Safety Report 5802374-3 (Version None)
Quarter: 2008Q3

REPORT INFORMATION
  Report Type: 
  Country: None (occurrence: None)
  Receive Date: 20080707
  Receipt Date: 20080623
  Transmission Date: 20090109
  Serious: Yes (Other)
  Sender: FDA-Public Use
  Company Number: CA-GENENTECH-263850

PATIENT
  Age: 52 Year
  Sex: Male

DRUGS (5)
  1. MABTHERA [Suspect]
     Indication: CASTLEMAN'S DISEASE
     Dates: start: 20021101, end: 20030601
  2. CYCLOPHOSPHAMIDE [Suspect]
     Indication: CASTLEMAN'S DISEASE
     Dosage: UNK, UNK
     Dates: start: 20021101, end: 20030101
  3. DOXORUBICIN HCL [Suspect]
     Indication: CASTLEMAN'S DISEASE
     Dosage: UNK, UNK
     Dates: start: 20021101, end: 20030101
  4. PREDNISONE TAB [Suspect]
     Indication: CASTLEMAN'S DISEASE
     Dates: start: 20021101, end: 20030101
  5. VINCRISTINE [Suspect]
     Indication: CASTLEMAN'S DISEASE
     Dates: start: 20021101, end: 20030101

REACTIONS (1)
  - CASTLEMAN'S DISEASE [None]
